FAERS Safety Report 8134305-8 (Version None)
Quarter: 2012Q1

REPORT INFORMATION
  Report Type: 
  Country: None (occurrence: None)
  Receive Date: 20120209
  Receipt Date: 20120125
  Transmission Date: 20120608
  Serious: Yes (Hospitalization)
  Sender: FDA-Public Use
  Company Number: JPI-P-018905

PATIENT
  Age: 86 Year
  Sex: Female

DRUGS (4)
  1. XYREM [Suspect]
     Indication: CATAPLEXY
     Dosage: 4.5 GM (2.25 GM, 2 IN 1 D), ORAL; (UNSPECIFIED INTERIM DOSE), ORAL, 12 GM (6 GM, 2 IN 1 D), ORAL
     Route: 048
     Dates: start: 20060407
  2. XYREM [Suspect]
     Indication: CATAPLEXY
     Dosage: 4.5 GM (2.25 GM, 2 IN 1 D), ORAL; (UNSPECIFIED INTERIM DOSE), ORAL, 12 GM (6 GM, 2 IN 1 D), ORAL
     Route: 048
     Dates: start: 20060101, end: 20060101
  3. XYREM [Suspect]
     Indication: CATAPLEXY
     Dosage: 4.5 GM (2.25 GM, 2 IN 1 D), ORAL; (UNSPECIFIED INTERIM DOSE), ORAL, 12 GM (6 GM, 2 IN 1 D), ORAL
     Route: 048
     Dates: start: 20041222, end: 20060101
  4. ORAL DIABETES MEDICATIONS [Concomitant]

REACTIONS (9)
  - OEDEMA PERIPHERAL [None]
  - PNEUMONIA [None]
  - HAEMATOMA [None]
  - INFECTION [None]
  - DYSPNOEA [None]
  - MALAISE [None]
  - ASTHENIA [None]
  - CARDIAC FAILURE CONGESTIVE [None]
  - CELLULITIS [None]
